FAERS Safety Report 4872511-6 (Version None)
Quarter: 2005Q4

REPORT INFORMATION
  Report Type: 
  Country: None (occurrence: None)
  Receive Date: 20051230
  Receipt Date: 20051230
  Transmission Date: 20060501
  Serious: Yes (Disabling)
  Sender: FDA-Public Use
  Company Number: None

PATIENT
  Age: 56 Year
  Sex: Male
  Weight: 78.5 kg

DRUGS (7)
  1. OLANZAPINE [Suspect]
     Indication: AGITATION
     Dosage: 10MG  PRN  IM   (ONE DOSE)
     Route: 030
     Dates: start: 20050925, end: 20050925
  2. VANCOMYCIN [Concomitant]
  3. GATIFLOXACIN [Concomitant]
  4. ACETAMINOPHEN [Concomitant]
  5. LORAZEPAM [Concomitant]
  6. NICOTINE [Concomitant]
  7. OMEPRAZOLE [Concomitant]

REACTIONS (1)
  - PYREXIA [None]
